FAERS Safety Report 9855162 (Version 1)
Quarter: 2014Q1

REPORT INFORMATION
  Report Type: Spontaneous
  Country: GB (occurrence: None)
  Receive Date: 20140127
  Receipt Date: 20140127
  Transmission Date: 20141002
  Serious: Yes (Hospitalization)
  Sender: FDA-Public Use
  Company Number: AG-2014-000189

PATIENT
  Age: 86 Year
  Sex: Male
  Weight: 66.5 kg

DRUGS (10)
  1. OFATUMUMAB [Suspect]
     Indication: CHRONIC LYMPHOCYTIC LEUKAEMIA
     Dosage: 1 CYCLICAL),
     Route: 042
     Dates: start: 20131210
  2. CHLORAMBUCIL [Suspect]
     Indication: CHRONIC LYMPHOCYTIC LEUKAEMIA
     Dosage: 126 MG, 1 CYCLICAL),ORAL
     Route: 048
     Dates: start: 20131210
  3. PARACETAMOL(UNKNOWN) [Concomitant]
  4. CHLORPHENIRAMINE(UNKNOWN) [Concomitant]
  5. PREDNISOLONE(UNKNOWN) [Concomitant]
  6. ALLOPURINOL(UNKNOWN) [Concomitant]
  7. METOCLOPRAMIDE(UNKNOWN) [Concomitant]
  8. ACICLOVIR(UNKNOWN) [Concomitant]
  9. G-CSF(UNKNOWN) [Concomitant]
  10. METHYLPREDNISOLONE(UNKNOWN) [Concomitant]

REACTIONS (1)
  - Lung infection [None]
